FAERS Safety Report 8803314 (Version 1)
Quarter: 2012Q4

REPORT INFORMATION
  Report Type: 
  Country: US (occurrence: US)
  Receive Date: 20120924
  Receipt Date: 20120924
  Transmission Date: 20130627
  Serious: No
  Sender: FDA-Public Use
  Company Number: US-JNJFOC-20120904795

PATIENT
  Age: 41 Year
  Sex: Male
  Weight: 90.72 kg

DRUGS (2)
  1. SANDOZ FENTANYL TRANSDERMAL SYSTEM [Suspect]
     Indication: PORPHYRIA
     Route: 062
     Dates: start: 20120908
  2. PERCOCET [Concomitant]
     Indication: BREAKTHROUGH PAIN
     Dosage: as needed
     Route: 048
     Dates: start: 201207

REACTIONS (4)
  - Dizziness [Recovered/Resolved]
  - Wrong technique in drug usage process [Not Recovered/Not Resolved]
  - Product quality issue [Unknown]
  - Product quality issue [Unknown]
